FAERS Safety Report 14698143 (Version 1)
Quarter: 2018Q1

REPORT INFORMATION
  Report Type: Spontaneous
  Country: HR (occurrence: HR)
  Receive Date: 20180330
  Receipt Date: 20180330
  Transmission Date: 20180509
  Serious: Yes (Hospitalization, Other)
  Sender: FDA-Public Use
  Company Number: HR-ABBVIE-18S-216-2284884-00

PATIENT
  Age: 57 Year
  Sex: Male

DRUGS (3)
  1. EPCLUSA [Suspect]
     Active Substance: SOFOSBUVIR\VELPATASVIR
     Indication: HEPATITIS C VIRUS TEST POSITIVE
     Dosage: 1 DF, QD
     Route: 065
     Dates: start: 20170626, end: 20170917
  2. PRILYR [Concomitant]
     Indication: PRODUCT USED FOR UNKNOWN INDICATION
  3. RIBAVIRIN. [Suspect]
     Active Substance: RIBAVIRIN
     Indication: HEPATITIS C VIRUS TEST POSITIVE
     Dosage: 600 MG, BID
     Route: 048
     Dates: start: 20170626, end: 20170917

REACTIONS (8)
  - Headache [Unknown]
  - Fatigue [Unknown]
  - Portal vein thrombosis [Unknown]
  - Asthenia [Unknown]
  - Hepatocellular carcinoma [Not Recovered/Not Resolved]
  - Insomnia [Unknown]
  - Anxiety [Unknown]
  - Treatment failure [Unknown]

NARRATIVE: CASE EVENT DATE: 2017
